FAERS Safety Report 18851392 (Version 2)
Quarter: 2021Q1

REPORT INFORMATION
  Report Type: Spontaneous
  Country: BR (occurrence: BR)
  Receive Date: 20210205
  Receipt Date: 20210210
  Transmission Date: 20210420
  Serious: No
  Sender: FDA-Public Use
  Company Number: BR-SA-2021SA029234

PATIENT
  Age: 9 Year
  Sex: Male

DRUGS (4)
  1. FRISIUM [Concomitant]
     Active Substance: CLOBAZAM
     Indication: SEIZURE
     Dosage: 1 TABLET IN THE MORNING AND ANOTHER TABLET AT NIGHT
  2. CEREZYME [Concomitant]
     Active Substance: IMIGLUCERASE
     Dosage: UNK
  3. METAMIZOLE SODIUM [Suspect]
     Active Substance: METAMIZOLE SODIUM
     Indication: VIRAL INFECTION
  4. CARBAMAZEPINE. [Concomitant]
     Active Substance: CARBAMAZEPINE
     Indication: SEIZURE
     Dosage: 1 TABLET TWICE IN THE MORNING AND TWICE AT NIGHT

REACTIONS (6)
  - Eye swelling [Unknown]
  - Eye discharge [Recovering/Resolving]
  - Vomiting [Recovered/Resolved]
  - Ocular hyperaemia [Unknown]
  - Drug ineffective [Unknown]
  - Eye irritation [Unknown]
